FAERS Safety Report 4902528-4 (Version None)
Quarter: 2006Q1

REPORT INFORMATION
  Report Type: 
  Country: None (occurrence: None)
  Receive Date: 20060202
  Receipt Date: 20060125
  Transmission Date: 20060701
  Serious: Yes (Hospitalization)
  Sender: FDA-Public Use
  Company Number: 2006-137558-NL

PATIENT
  Age: 55 Year
  Sex: Male

DRUGS (6)
  1. MIRTAZAPINE [Suspect]
     Indication: DEPRESSION
     Dosage: 30 MG QD
     Route: 048
     Dates: end: 20060118
  2. THIAMINE [Concomitant]
  3. OMEPRAZOLE [Concomitant]
  4. VITAMIN B-COMPLEX FORTE [Concomitant]
  5. BECLOMETHASONE DIPROPRIONATE [Concomitant]
  6. COMBIVENT [Concomitant]

REACTIONS (1)
  - HYPONATRAEMIA [None]
